FAERS Safety Report 7929639-3 (Version None)
Quarter: 2011Q4

REPORT INFORMATION
  Report Type: 
  Country: None (occurrence: None)
  Receive Date: 20111116
  Receipt Date: 20111102
  Transmission Date: 20120403
  Serious: Yes (Hospitalization)
  Sender: FDA-Public Use
  Company Number: JPI_P-012439

PATIENT
  Age: 60 Year
  Sex: Female

DRUGS (25)
  1. ACETAMINOPHEN W/ PROPOXYPHENE HCL [Concomitant]
  2. SIMVASTATIN [Concomitant]
  3. LEVOTHYROXINE SODIUM [Concomitant]
  4. FAMOTIDINE [Concomitant]
  5. XYREM [Suspect]
     Indication: NARCOLEPSY
     Dosage: 4 GM (2 GM, 2 IN 1 D), ORAL   5 GM (2.5 GM, 2 IN 1 D), ORAL   6 GM (3 GM, 2 IN 1 D), ORAL  4.5 GM (2
     Route: 048
     Dates: start: 20111011
  6. XYREM [Suspect]
     Indication: RESTLESS LEGS SYNDROME
     Dosage: 4 GM (2 GM, 2 IN 1 D), ORAL   5 GM (2.5 GM, 2 IN 1 D), ORAL   6 GM (3 GM, 2 IN 1 D), ORAL  4.5 GM (2
     Route: 048
     Dates: start: 20111011
  7. XYREM [Suspect]
     Indication: FIBROMYALGIA
     Dosage: 4 GM (2 GM, 2 IN 1 D), ORAL   5 GM (2.5 GM, 2 IN 1 D), ORAL   6 GM (3 GM, 2 IN 1 D), ORAL  4.5 GM (2
     Route: 048
     Dates: start: 20111011
  8. XYREM [Suspect]
     Indication: NARCOLEPSY
     Dosage: 4 GM (2 GM, 2 IN 1 D), ORAL   5 GM (2.5 GM, 2 IN 1 D), ORAL   6 GM (3 GM, 2 IN 1 D), ORAL  4.5 GM (2
     Route: 048
     Dates: start: 20051123
  9. XYREM [Suspect]
     Indication: RESTLESS LEGS SYNDROME
     Dosage: 4 GM (2 GM, 2 IN 1 D), ORAL   5 GM (2.5 GM, 2 IN 1 D), ORAL   6 GM (3 GM, 2 IN 1 D), ORAL  4.5 GM (2
     Route: 048
     Dates: start: 20051123
  10. XYREM [Suspect]
     Indication: FIBROMYALGIA
     Dosage: 4 GM (2 GM, 2 IN 1 D), ORAL   5 GM (2.5 GM, 2 IN 1 D), ORAL   6 GM (3 GM, 2 IN 1 D), ORAL  4.5 GM (2
     Route: 048
     Dates: start: 20051123
  11. XYREM [Suspect]
     Indication: NARCOLEPSY
     Dosage: 4 GM (2 GM, 2 IN 1 D), ORAL   5 GM (2.5 GM, 2 IN 1 D), ORAL   6 GM (3 GM, 2 IN 1 D), ORAL  4.5 GM (2
     Route: 048
     Dates: start: 20060105
  12. XYREM [Suspect]
     Indication: RESTLESS LEGS SYNDROME
     Dosage: 4 GM (2 GM, 2 IN 1 D), ORAL   5 GM (2.5 GM, 2 IN 1 D), ORAL   6 GM (3 GM, 2 IN 1 D), ORAL  4.5 GM (2
     Route: 048
     Dates: start: 20060105
  13. XYREM [Suspect]
     Indication: FIBROMYALGIA
     Dosage: 4 GM (2 GM, 2 IN 1 D), ORAL   5 GM (2.5 GM, 2 IN 1 D), ORAL   6 GM (3 GM, 2 IN 1 D), ORAL  4.5 GM (2
     Route: 048
     Dates: start: 20060105
  14. XYREM [Suspect]
     Indication: NARCOLEPSY
     Dosage: 4 GM (2 GM, 2 IN 1 D), ORAL   5 GM (2.5 GM, 2 IN 1 D), ORAL   6 GM (3 GM, 2 IN 1 D), ORAL  4.5 GM (2
     Route: 048
     Dates: start: 20061124, end: 20100926
  15. XYREM [Suspect]
     Indication: RESTLESS LEGS SYNDROME
     Dosage: 4 GM (2 GM, 2 IN 1 D), ORAL   5 GM (2.5 GM, 2 IN 1 D), ORAL   6 GM (3 GM, 2 IN 1 D), ORAL  4.5 GM (2
     Route: 048
     Dates: start: 20061124, end: 20100926
  16. XYREM [Suspect]
     Indication: FIBROMYALGIA
     Dosage: 4 GM (2 GM, 2 IN 1 D), ORAL   5 GM (2.5 GM, 2 IN 1 D), ORAL   6 GM (3 GM, 2 IN 1 D), ORAL  4.5 GM (2
     Route: 048
     Dates: start: 20061124, end: 20100926
  17. XYREM [Suspect]
     Indication: NARCOLEPSY
     Dosage: 4 GM (2 GM, 2 IN 1 D), ORAL   5 GM (2.5 GM, 2 IN 1 D), ORAL   6 GM (3 GM, 2 IN 1 D), ORAL  4.5 GM (2
     Route: 048
     Dates: start: 20110901, end: 20110101
  18. XYREM [Suspect]
     Indication: RESTLESS LEGS SYNDROME
     Dosage: 4 GM (2 GM, 2 IN 1 D), ORAL   5 GM (2.5 GM, 2 IN 1 D), ORAL   6 GM (3 GM, 2 IN 1 D), ORAL  4.5 GM (2
     Route: 048
     Dates: start: 20110901, end: 20110101
  19. XYREM [Suspect]
     Indication: FIBROMYALGIA
     Dosage: 4 GM (2 GM, 2 IN 1 D), ORAL   5 GM (2.5 GM, 2 IN 1 D), ORAL   6 GM (3 GM, 2 IN 1 D), ORAL  4.5 GM (2
     Route: 048
     Dates: start: 20110901, end: 20110101
  20. FLUTICASONE AND SALMETEROL [Concomitant]
  21. RALOXIFENE HCL [Concomitant]
  22. ARMODAFINIL [Concomitant]
  23. ROPINIROLE [Concomitant]
  24. ALBUTEROL SULFATE [Concomitant]
  25. GABAPENTIN [Concomitant]

REACTIONS (6)
  - MOOD SWINGS [None]
  - BLOOD SODIUM DECREASED [None]
  - MEMORY IMPAIRMENT [None]
  - ARTERIAL OCCLUSIVE DISEASE [None]
  - IRRITABILITY [None]
  - WEIGHT DECREASED [None]
